FAERS Safety Report 10274728 (Version 1)
Quarter: 2014Q3

REPORT INFORMATION
  Report Type: Spontaneous
  Country: PE (occurrence: PE)
  Receive Date: 20140702
  Receipt Date: 20140702
  Transmission Date: 20150326
  Serious: Yes (Other)
  Sender: FDA-Public Use
  Company Number: PE-PFIZER INC-2014181496

PATIENT
  Age: 67 Year
  Sex: Female

DRUGS (1)
  1. XANAX [Suspect]
     Active Substance: ALPRAZOLAM
     Dosage: UNK
     Route: 048

REACTIONS (8)
  - Burning sensation [Recovering/Resolving]
  - Dry mouth [Not Recovered/Not Resolved]
  - Malaise [Recovering/Resolving]
  - Kidney infection [Not Recovered/Not Resolved]
  - Gastritis [Not Recovered/Not Resolved]
  - Bladder irritation [Not Recovered/Not Resolved]
  - Headache [Not Recovered/Not Resolved]
  - Chills [Unknown]

NARRATIVE: CASE EVENT DATE: 20140629
